FAERS Safety Report 8557476-8 (Version None)
Quarter: 2012Q3

REPORT INFORMATION
  Report Type: 
  Country: None (occurrence: None)
  Receive Date: 20120801
  Receipt Date: 20120726
  Transmission Date: 20120928
  Serious: Yes (Death, Hospitalization, Other)
  Sender: FDA-Public Use
  Company Number: FR-009507513-1207FRA011117

PATIENT

DRUGS (7)
  1. EMEND [Suspect]
     Dosage: UNK
     Route: 048
     Dates: start: 20120423
  2. CALCIPARINE [Concomitant]
     Dosage: UNK
  3. CYCLOPHOSPHAMIDE [Interacting]
     Indication: SARCOMA
     Dosage: UNK
     Dates: start: 20120322
  4. CYCLOPHOSPHAMIDE [Interacting]
     Dosage: UNK
     Dates: start: 20120423
  5. GRANOCYTE [Concomitant]
  6. ZOFRAN [Concomitant]
  7. CYCLOPHOSPHAMIDE [Interacting]
     Dosage: UNK

REACTIONS (6)
  - TOXIC ENCEPHALOPATHY [None]
  - RENAL FAILURE [None]
  - LUNG DISORDER [None]
  - SEPTIC SHOCK [None]
  - PANCYTOPENIA [None]
  - DRUG INTERACTION [None]
